FAERS Safety Report 5719887-5 (Version None)
Quarter: 2008Q2

REPORT INFORMATION
  Report Type: 
  Country: None (occurrence: None)
  Receive Date: 20080428
  Receipt Date: 20080411
  Transmission Date: 20081010
  Serious: No
  Sender: FDA-Public Use
  Company Number: A0663344A

PATIENT
  Age: 36 Year
  Sex: Female
  Weight: 59.5 kg

DRUGS (5)
  1. ZOFRAN [Suspect]
     Indication: HYPEREMESIS GRAVIDARUM
     Dosage: 8MG VARIABLE DOSE
     Route: 048
     Dates: start: 20070627, end: 20080212
  2. VITAMIN AND MINERAL PRENATAL SUPPLEMENT W/ FOLIC ACID CAP [Concomitant]
     Indication: PRENATAL CARE
     Route: 048
     Dates: start: 20070622, end: 20080322
  3. PRIMACARE [Concomitant]
     Indication: PRENATAL CARE
     Route: 048
     Dates: start: 20070628, end: 20080328
  4. FERROUS SULFATE TAB [Concomitant]
     Dosage: 325MG THREE TIMES PER DAY
     Route: 048
     Dates: start: 20080125, end: 20080328
  5. COLACE [Concomitant]
     Dosage: 100MG TWICE PER DAY
     Route: 048
     Dates: start: 20080125

REACTIONS (2)
  - DRUG EXPOSURE DURING PREGNANCY [None]
  - LIVE BIRTH [None]
